FAERS Safety Report 18810080 (Version 4)
Quarter: 2021Q4

REPORT INFORMATION
  Report Type: Spontaneous
  Country: GR (occurrence: GR)
  Receive Date: 20210129
  Receipt Date: 20211126
  Transmission Date: 20220303
  Serious: Yes (Other)
  Sender: FDA-Public Use
  Company Number: GR-009507513-2012GRC004472

PATIENT
  Age: 28 Year
  Sex: Male
  Weight: 120 kg

DRUGS (14)
  1. IRINOTECAN HYDROCHLORIDE [Suspect]
     Active Substance: IRINOTECAN HYDROCHLORIDE
     Indication: Glioblastoma multiforme
     Dosage: INITIALLY AT 30 MG/M^2 (WITH A PLAN OF DOSE ESCALATION UP TO 50 MG/M^2 IN THE ABSENCE OF SIGNIFICANT
     Route: 042
     Dates: start: 201909
  2. BEVACIZUMAB [Suspect]
     Active Substance: BEVACIZUMAB
     Indication: Glioblastoma multiforme
     Dosage: 15 MG/KG (ON DAY 1, CYCLICAL)
     Dates: start: 201909
  3. DEXAMETHASONE [Suspect]
     Active Substance: DEXAMETHASONE
     Indication: Seizure
     Dosage: 6 MG, 2X/DAY
     Route: 048
     Dates: start: 2019, end: 2020
  4. DEXAMETHASONE [Suspect]
     Active Substance: DEXAMETHASONE
     Indication: Glioblastoma
     Dates: end: 2020
  5. TEMOZOLOMIDE [Suspect]
     Active Substance: TEMOZOLOMIDE
     Indication: Glioblastoma multiforme
     Dosage: 100 MG/M2 (CYCLICAL)
     Route: 048
     Dates: start: 201909
  6. VINCRISTINE [Suspect]
     Active Substance: VINCRISTINE
     Indication: Glioblastoma multiforme
     Dosage: 2 MG (ON DAY 1, CYCLICAL)
     Route: 042
     Dates: start: 201909
  7. APREPITANT [Concomitant]
     Active Substance: APREPITANT
     Indication: Prophylaxis of nausea and vomiting
     Dosage: 125 MG O.D. ON DAY 1 FOLLOWED BY 80 MG O.D. ON DAYS 2-5, CYCLICAL
     Dates: start: 201909
  8. CEFIXIME [Concomitant]
     Active Substance: CEFIXIME
     Indication: Prophylaxis
     Dosage: 400 MG (OD BETWEEN DAYS -2 AND +10 OF EACH COURSE)
     Route: 048
     Dates: start: 201909
  9. DIMETHINDENE MALEATE [Concomitant]
     Active Substance: DIMETHINDENE MALEATE
     Dosage: 2 MG (CYCLICAL)
     Route: 042
     Dates: start: 201909
  10. DEXTROSE [Concomitant]
     Active Substance: DEXTROSE
     Dosage: UNK
     Route: 042
     Dates: start: 201909
  11. LOPERAMIDE [Concomitant]
     Active Substance: LOPERAMIDE
     Indication: Prophylaxis against diarrhoea
     Dosage: UNK
     Dates: start: 201909
  12. PALONOSETRON HYDROCHLORIDE [Concomitant]
     Active Substance: PALONOSETRON HYDROCHLORIDE
     Indication: Prophylaxis of nausea and vomiting
     Dosage: 0.25 MG
     Route: 048
     Dates: start: 201909
  13. SODIUM CHLORIDE [Concomitant]
     Active Substance: SODIUM CHLORIDE
     Dosage: 50 ML
     Route: 042
     Dates: start: 201909
  14. LEVETIRACETAM [Concomitant]
     Active Substance: LEVETIRACETAM
     Dosage: UNK

REACTIONS (2)
  - Off label use [Unknown]
  - Drug-induced liver injury [Recovered/Resolved]

NARRATIVE: CASE EVENT DATE: 20190901
